FAERS Safety Report 8841122 (Version 1)
Quarter: 2012Q4

REPORT INFORMATION
  Report Type: 
  Country: US (occurrence: US)
  Receive Date: 20121015
  Receipt Date: 20121015
  Transmission Date: 20130627
  Serious: Yes (Hospitalization)
  Sender: FDA-Public Use
  Company Number: US-MYLANLABS-2012S1020736

PATIENT
  Age: 65 Year
  Sex: Male

DRUGS (2)
  1. FLUOXETINE [Suspect]
     Dosage: 20mg daily
     Route: 065
  2. DONEPEZIL [Interacting]
     Dosage: 10mg nightly
     Route: 065

REACTIONS (2)
  - Cholinergic syndrome [Recovering/Resolving]
  - Drug interaction [Recovering/Resolving]
